FAERS Safety Report 14336859 (Version 2)
Quarter: 2022Q4

REPORT INFORMATION
  Report Type: Spontaneous
  Country: PT (occurrence: PT)
  Receive Date: 20171229
  Receipt Date: 20221120
  Transmission Date: 20230113
  Serious: Yes (Death, Hospitalization, Other)
  Sender: FDA-Public Use
  Company Number: PT-AMGEN-PRTSP2017191003

PATIENT
  Age: 47 Year
  Sex: Female

DRUGS (3)
  1. FILGRASTIM [Suspect]
     Active Substance: FILGRASTIM
     Indication: Febrile neutropenia
     Dosage: UNK
     Route: 065
  2. METHYLPREDNISOLONE [Concomitant]
     Active Substance: METHYLPREDNISOLONE
     Dosage: 500 MILLIGRAM
     Route: 042
  3. CYCLOSPORINE [Concomitant]
     Active Substance: CYCLOSPORINE
     Dosage: 150 MG, QD

REACTIONS (9)
  - Colitis [Fatal]
  - Haematochezia [Unknown]
  - Cytomegalovirus infection [Unknown]
  - Stoma site haemorrhage [Unknown]
  - Large intestinal ulcer [Unknown]
  - Haemodynamic instability [Unknown]
  - Vasculitis [Unknown]
  - Anaemia [Unknown]
  - Off label use [Unknown]
